FAERS Safety Report 25103424 (Version 1)
Quarter: 2025Q1

REPORT INFORMATION
  Report Type: Spontaneous
  Country: US (occurrence: US)
  Receive Date: 20250321
  Receipt Date: 20250321
  Transmission Date: 20250409
  Serious: No
  Sender: LUPIN
  Company Number: US-LUPIN PHARMACEUTICALS INC.-2025-01546

PATIENT
  Age: 83 Year
  Weight: 41.73 kg

DRUGS (1)
  1. TIOTROPIUM BROMIDE [Suspect]
     Active Substance: TIOTROPIUM BROMIDE
     Indication: Chronic obstructive pulmonary disease
     Dosage: 18 MCG, QD

REACTIONS (3)
  - Device difficult to use [Unknown]
  - Wrong technique in device usage process [Unknown]
  - No adverse event [Unknown]
